FAERS Safety Report 7801443-6 (Version None)
Quarter: 2011Q4

REPORT INFORMATION
  Report Type: 
  Country: None (occurrence: None)
  Receive Date: 20111005
  Receipt Date: 20110926
  Transmission Date: 20120403
  Serious: Yes (Life-Threatening)
  Sender: FDA-Public Use
  Company Number: 1000024074

PATIENT
  Age: 84 Year
  Sex: Female

DRUGS (6)
  1. BRONKYL (ACETYLCYSTEINE) (TABLETS) (ACETYLCYSTEINE) [Concomitant]
  2. ROFLUMILAST (ROFLUMILAST) (TABLETS) [Suspect]
     Indication: CHRONIC OBSTRUCTIVE PULMONARY DISEASE
     Dosage: 500 MICROGRAM (500 MCG,1 IN 1 D),ORAL
     Route: 048
     Dates: start: 20110414, end: 20110425
  3. AERIUS (DESLORATADINE) (TABLETS) (DESLORATADINE) [Concomitant]
  4. ATACAND PLUS (CANDESARTAN, HYDROCHLOROTHIAZIDE) (CANDESARTAN, HYDROCHL [Concomitant]
  5. SNIGULAIR (MONTELUKAST SODIUM) (TABLETS) (MONTELUKAST SODIUM) [Concomitant]
  6. NUELIN DEPOT (THEOPHYLLINE) (TABLETS) (THEOPHYLLINE) [Concomitant]

REACTIONS (2)
  - SUICIDAL IDEATION [None]
  - FEELING OF BODY TEMPERATURE CHANGE [None]
